FAERS Safety Report 7155102-6 (Version None)
Quarter: 2010Q4

REPORT INFORMATION
  Report Type: 
  Country: None (occurrence: None)
  Receive Date: 20101214
  Receipt Date: 20100312
  Transmission Date: 20110411
  Serious: No
  Sender: FDA-Public Use
  Company Number: US-AMGEN-KDL258344

PATIENT

DRUGS (3)
  1. ENBREL [Suspect]
     Indication: PSORIATIC ARTHROPATHY
     Dosage: 50 MG, QWK
     Route: 058
     Dates: start: 20070328
  2. SULFASALAZINE [Concomitant]
     Dosage: UNK UNK, UNK
     Dates: start: 20050101
  3. INFLUENZA VACCINE [Concomitant]
     Dosage: UNK UNK, UNK

REACTIONS (8)
  - BACK PAIN [None]
  - BLOOD BILIRUBIN ABNORMAL [None]
  - BRONCHITIS [None]
  - COMPRESSION FRACTURE [None]
  - HERPES ZOSTER [None]
  - NASOPHARYNGITIS [None]
  - PSORIATIC ARTHROPATHY [None]
  - WHITE BLOOD CELL COUNT DECREASED [None]
